FAERS Safety Report 25864079 (Version 1)
Quarter: 2025Q3

REPORT INFORMATION
  Report Type: Spontaneous
  Country: US (occurrence: None)
  Receive Date: 20250929
  Receipt Date: 20250929
  Transmission Date: 20251020
  Serious: Yes (Other)
  Sender: FDA-CTU
  Company Number: None

PATIENT
  Age: 79 Year
  Sex: Female
  Weight: 42.64 kg

DRUGS (1)
  1. TOBRAMYCIN [Suspect]
     Active Substance: TOBRAMYCIN
     Indication: Bronchiectasis
     Dosage: OTHER QUANTITY : 1ML VIAL VIA NEBULIZER;?FREQUENCY : TWICE A DAY;?
     Route: 055
     Dates: start: 20250901, end: 20250902

REACTIONS (3)
  - Mouth swelling [None]
  - Eye irritation [None]
  - Accidental exposure to product [None]

NARRATIVE: CASE EVENT DATE: 20250901
